FAERS Safety Report 7197097-5 (Version None)
Quarter: 2010Q4

REPORT INFORMATION
  Report Type: 
  Country: None (occurrence: None)
  Receive Date: 20101224
  Receipt Date: 20101220
  Transmission Date: 20110411
  Serious: Yes (Other)
  Sender: FDA-Public Use
  Company Number: US-ROXANE LABORATORIES, INC.-2010-RO-01715RO

PATIENT
  Age: 68 Year
  Sex: Male

DRUGS (2)
  1. LITHIUM CARBONATE [Suspect]
     Indication: BIPOLAR DISORDER
     Route: 048
     Dates: start: 20080101, end: 20100401
  2. LITHIUM CARBONATE [Suspect]
     Route: 048
     Dates: start: 20100401

REACTIONS (3)
  - HYPOMANIA [None]
  - MANIA [None]
  - THERAPEUTIC AGENT TOXICITY [None]
